FAERS Safety Report 25468337 (Version 1)
Quarter: 2025Q2

REPORT INFORMATION
  Report Type: Spontaneous
  Country: US (occurrence: US)
  Receive Date: 20250623
  Receipt Date: 20250623
  Transmission Date: 20250716
  Serious: No
  Sender: GILEAD
  Company Number: US-GILEAD-2025-0717847

PATIENT
  Age: 73 Year
  Sex: Male

DRUGS (2)
  1. VOSEVI [Suspect]
     Active Substance: SOFOSBUVIR\VELPATASVIR\VOXILAPREVIR
     Indication: Product used for unknown indication
     Route: 065
  2. RIBAVIRIN [Concomitant]
     Active Substance: RIBAVIRIN

REACTIONS (7)
  - Arthralgia [Not Recovered/Not Resolved]
  - Pain in extremity [Not Recovered/Not Resolved]
  - Gingival bleeding [Not Recovered/Not Resolved]
  - Blood creatine phosphokinase increased [Not Recovered/Not Resolved]
  - Red blood cell sedimentation rate increased [Not Recovered/Not Resolved]
  - Myositis [Unknown]
  - Product use issue [Unknown]

NARRATIVE: CASE EVENT DATE: 20250618
